FAERS Safety Report 23615675 (Version 2)
Quarter: 2025Q2

REPORT INFORMATION
  Report Type: Spontaneous
  Country: JP (occurrence: JP)
  Receive Date: 20240311
  Receipt Date: 20250507
  Transmission Date: 20250716
  Serious: No
  Sender: UCB
  Company Number: JP-UCBSA-2024009475

PATIENT

DRUGS (1)
  1. NEUPRO [Suspect]
     Active Substance: ROTIGOTINE
     Indication: Product used for unknown indication
     Route: 062

REACTIONS (1)
  - Product adhesion issue [Unknown]
